FAERS Safety Report 10229160 (Version 2)
Quarter: 2014Q2

REPORT INFORMATION
  Report Type: Report from Study
  Country: US (occurrence: US)
  Receive Date: 20140611
  Receipt Date: 20140620
  Transmission Date: 20141212
  Serious: Yes (Hospitalization)
  Sender: FDA-Public Use
  Company Number: US-ASTRAZENECA-2014SE40005

PATIENT
  Age: 27652 Day
  Sex: Female

DRUGS (21)
  1. AZD6140 [Suspect]
     Indication: CORONARY ARTERY DISEASE
     Route: 048
     Dates: start: 20120206, end: 20120416
  2. AZD6140 [Suspect]
     Indication: CORONARY ARTERY DISEASE
     Route: 048
     Dates: start: 20120425, end: 20120709
  3. AZD6140 [Suspect]
     Indication: CORONARY ARTERY DISEASE
     Route: 048
     Dates: start: 20120724, end: 20140530
  4. SYNTHROID [Concomitant]
     Indication: THYROID HORMONE REPLACEMENT THERAPY
     Route: 048
     Dates: start: 20131217
  5. AMLODIPINE [Concomitant]
     Indication: HYPERTENSION
     Route: 048
  6. AMLODIPINE [Concomitant]
     Indication: ANGINA PECTORIS
     Route: 048
  7. CARVEDILOL [Concomitant]
     Indication: HYPERTENSION
     Route: 048
  8. CARVEDILOL [Concomitant]
     Indication: CARDIAC FAILURE CONGESTIVE
     Route: 048
  9. ALLOPURINOL [Concomitant]
     Indication: GOUT
     Route: 048
  10. VITAMIN B12 [Concomitant]
     Indication: FATIGUE
     Route: 058
  11. FUROSEMIDE [Concomitant]
     Indication: HYPERTENSION
     Route: 048
  12. FUROSEMIDE [Concomitant]
     Indication: CARDIAC FAILURE CONGESTIVE
     Route: 048
  13. FUROSEMIDE [Concomitant]
     Indication: OEDEMA
     Route: 048
  14. HYDRALAZINE [Concomitant]
     Indication: HYPERTENSION
     Route: 048
  15. HYDRALAZINE [Concomitant]
     Indication: CARDIAC FAILURE CONGESTIVE
     Route: 048
  16. VITAMIN D [Concomitant]
     Indication: NUTRITIONAL SUPPLEMENTATION
     Route: 048
     Dates: start: 20130919
  17. ISOSORBIDE MONONITRATE [Concomitant]
     Indication: ANGINA PECTORIS
     Route: 048
  18. SYMBICORT [Concomitant]
     Indication: ASTHMA
     Route: 055
     Dates: start: 20120203, end: 20120210
  19. SYMBICORT [Concomitant]
     Indication: ASTHMA
     Route: 055
     Dates: start: 20120303
  20. ASA [Concomitant]
     Route: 048
     Dates: end: 20120205
  21. ASA [Concomitant]
     Route: 048
     Dates: start: 20120206

REACTIONS (1)
  - Cardiac failure congestive [Not Recovered/Not Resolved]
